FAERS Safety Report 10903828 (Version 1)
Quarter: 2015Q1

REPORT INFORMATION
  Report Type: Spontaneous
  Country: FR (occurrence: FR)
  Receive Date: 20150311
  Receipt Date: 20150311
  Transmission Date: 20150721
  Serious: Yes (Hospitalization)
  Sender: FDA-Public Use
  Company Number: FR-JNJFOC-20150217522

PATIENT
  Age: 58 Year
  Sex: Male

DRUGS (6)
  1. HALDOL [Suspect]
     Active Substance: HALOPERIDOL
     Indication: AGITATION
     Route: 030
     Dates: start: 20141007
  2. RISPERDAL [Suspect]
     Active Substance: RISPERIDONE
     Indication: MANIA
     Route: 048
     Dates: start: 20141010, end: 2014
  3. RISPERDAL [Suspect]
     Active Substance: RISPERIDONE
     Indication: MANIA
     Route: 048
     Dates: start: 201406, end: 201410
  4. RISPERDAL [Suspect]
     Active Substance: RISPERIDONE
     Indication: MANIA
     Route: 048
     Dates: end: 201410
  5. RISPERDAL CONSTA [Suspect]
     Active Substance: RISPERIDONE
     Indication: MANIA
     Route: 030
     Dates: start: 201410
  6. LOXAPAC [Suspect]
     Active Substance: LOXAPINE SUCCINATE
     Indication: AGITATION
     Route: 030
     Dates: start: 20141007

REACTIONS (2)
  - Catatonia [Recovered/Resolved]
  - Electrocardiogram QT prolonged [Unknown]

NARRATIVE: CASE EVENT DATE: 20141007
